FAERS Safety Report 4872873-X (Version None)
Quarter: 2006Q1

REPORT INFORMATION
  Report Type: 
  Country: None (occurrence: None)
  Receive Date: 20060105
  Receipt Date: 20040115
  Transmission Date: 20060701
  Serious: Yes (Other)
  Sender: FDA-Public Use
  Company Number: US-BRISTOL-MYERS SQUIBB COMPANY-12487799

PATIENT
  Age: 50 Year
  Sex: Female
  Weight: 104 kg

DRUGS (4)
  1. SERZONE [Suspect]
     Indication: DEPRESSION
     Dosage: DOSAGE: FROM NOVEMBER 2001, 600MG DAILY
     Route: 048
     Dates: start: 20000601
  2. LITHIUM [Concomitant]
  3. SEROQUEL [Concomitant]
  4. LIPITOR [Concomitant]

REACTIONS (2)
  - COMA [None]
  - HEPATIC FUNCTION ABNORMAL [None]
